FAERS Safety Report 13406359 (Version 1)
Quarter: 2017Q2

REPORT INFORMATION
  Report Type: Spontaneous
  Country: US (occurrence: US)
  Receive Date: 20170405
  Receipt Date: 20170405
  Transmission Date: 20170830
  Serious: No
  Sender: FDA-Public Use
  Company Number: US-SA-2016SA093279

PATIENT
  Sex: Female

DRUGS (1)
  1. ALLEGRA [Suspect]
     Active Substance: FEXOFENADINE HYDROCHLORIDE
     Route: 065

REACTIONS (5)
  - Dyspnoea [Unknown]
  - Rhinorrhoea [Unknown]
  - Nasal congestion [Unknown]
  - Dysgeusia [Unknown]
  - Hot flush [Unknown]
